FAERS Safety Report 13427546 (Version 2)
Quarter: 2017Q2

REPORT INFORMATION
  Report Type: Spontaneous
  Country: US (occurrence: US)
  Receive Date: 20170411
  Receipt Date: 20170518
  Transmission Date: 20170830
  Serious: Yes (Other)
  Sender: FDA-Public Use
  Company Number: US-GLAXOSMITHKLINE-US2017048278

PATIENT
  Sex: Female
  Weight: 79.82 kg

DRUGS (2)
  1. BENLYSTA [Suspect]
     Active Substance: BELIMUMAB
     Indication: SYSTEMIC LUPUS ERYTHEMATOSUS
     Dosage: 1 DF, Z
     Route: 042
     Dates: start: 20170323
  2. BENLYSTA [Suspect]
     Active Substance: BELIMUMAB
     Dosage: UNK

REACTIONS (5)
  - Condition aggravated [Unknown]
  - Dark circles under eyes [Unknown]
  - Vomiting [Recovered/Resolved]
  - Systemic lupus erythematosus [Unknown]
  - Nausea [Recovered/Resolved]
